FAERS Safety Report 20286398 (Version 1)
Quarter: 2022Q1

REPORT INFORMATION
  Report Type: Spontaneous
  Country: CN (occurrence: CN)
  Receive Date: 20220103
  Receipt Date: 20220103
  Transmission Date: 20220423
  Serious: Yes (Other)
  Sender: FDA-Public Use
  Company Number: CN-Accord-248140

PATIENT
  Age: 26 Year
  Sex: Male
  Weight: 68 kg

DRUGS (7)
  1. DEXMEDETOMIDINE HYDROCHLORIDE [Suspect]
     Active Substance: DEXMEDETOMIDINE HYDROCHLORIDE
     Indication: Anaesthesia
     Dosage: 0.0004%, 5 ML/H
  2. SEVOFLURANE [Suspect]
     Active Substance: SEVOFLURANE
     Indication: Anaesthesia
     Dosage: (1%)
  3. REMIFENTANIL [Concomitant]
     Active Substance: REMIFENTANIL
     Indication: Anaesthesia
     Dosage: 0.005%, 8 ML/H
  4. PROPOFOL [Concomitant]
     Active Substance: PROPOFOL
     Indication: Anaesthesia
     Dosage: 1%, 30 ML/H
  5. FENTANYL [Concomitant]
     Active Substance: FENTANYL
     Indication: Anaesthesia
  6. KETAMINE [Concomitant]
     Active Substance: KETAMINE
     Indication: Anaesthesia
  7. BUTORPHANOL TARTRATE [Concomitant]
     Active Substance: BUTORPHANOL TARTRATE

REACTIONS (4)
  - Polyuria [Recovered/Resolved]
  - Diabetes insipidus [Recovered/Resolved]
  - Tachycardia [Recovered/Resolved]
  - Hypernatraemia [Recovered/Resolved]
